FAERS Safety Report 4906289-4 (Version None)
Quarter: 2006Q1

REPORT INFORMATION
  Report Type: 
  Country: None (occurrence: None)
  Receive Date: 20060209
  Receipt Date: 20050914
  Transmission Date: 20060701
  Serious: Yes (Death, Life-Threatening, Hospitalization)
  Sender: FDA-Public Use
  Company Number: US-ABBOTT-05P-163-0311006-00

PATIENT
  Sex: Male
  Weight: 63 kg

DRUGS (43)
  1. RITONAVIR SOFT GELATIN CAPSULES [Suspect]
     Indication: HIV INFECTION
     Route: 048
     Dates: start: 20050131
  2. RITONAVIR SOFT GELATIN CAPSULES [Suspect]
     Route: 048
     Dates: start: 20050317
  3. RITONAVIR SOFT GELATIN CAPSULES [Suspect]
     Dates: end: 20051216
  4. TMC114 [Concomitant]
     Indication: HIV INFECTION
     Route: 048
     Dates: start: 20050317, end: 20051216
  5. EMTRICITABINE [Concomitant]
     Indication: HIV INFECTION
     Route: 048
     Dates: start: 20050101
  6. EMTRICITABINE [Concomitant]
     Route: 048
     Dates: start: 20050330
  7. EMTRICITABINE [Concomitant]
     Route: 048
     Dates: start: 20050412
  8. EMTRICITABINE [Concomitant]
     Route: 048
     Dates: start: 20051201
  9. TENOFOVIR [Concomitant]
     Indication: HIV INFECTION
     Route: 048
     Dates: start: 20030101
  10. TENOFOVIR [Concomitant]
     Route: 048
     Dates: start: 20050330
  11. TENOFOVIR [Concomitant]
     Route: 048
     Dates: start: 20050412
  12. TENOFOVIR [Concomitant]
     Dates: start: 20051201
  13. DAPSONE [Concomitant]
     Indication: INFECTION PROPHYLAXIS
     Route: 048
  14. FLUCONAZOLE [Concomitant]
     Indication: ANTIFUNGAL PROPHYLAXIS
     Route: 048
  15. METFORMIN HYDROCHLORIDE [Concomitant]
     Indication: DIABETES MELLITUS
     Route: 048
  16. GLIBENCLAMIDE [Concomitant]
     Indication: DIABETES MELLITUS
     Route: 048
  17. PANTOPRAZOLE [Concomitant]
     Indication: GASTROOESOPHAGEAL REFLUX DISEASE
     Route: 048
  18. LEVOTHYROXINE SODIUM [Concomitant]
     Indication: HYPOTHYROIDISM
     Route: 048
  19. OXYCODONE HCL [Concomitant]
     Indication: GASTROOESOPHAGEAL REFLUX DISEASE
     Route: 048
  20. ISOPHANE INSULIN [Concomitant]
     Indication: DIABETES MELLITUS
     Dosage: 50 DOSE(S)
     Route: 058
  21. ISOPHANE INSULIN [Concomitant]
  22. INSULIN HUMAN [Concomitant]
     Indication: DIABETES MELLITUS
     Dosage: 20 DOSE(S)
     Route: 058
  23. PARACETAMOL [Concomitant]
     Indication: HEADACHE
     Route: 048
     Dates: start: 20050410
  24. LISINOPRIL [Concomitant]
     Indication: HYPERTENSION
     Route: 048
     Dates: start: 20050712
  25. LISINOPRIL [Concomitant]
     Dates: start: 20050907
  26. STAVUDINE [Concomitant]
     Indication: HIV INFECTION
     Route: 048
     Dates: start: 20050317
  27. FUROSEMIDE [Concomitant]
     Indication: MYOCARDIAL INFARCTION
     Dates: start: 20050901
  28. GLYCERYL TRINITRATE [Concomitant]
     Indication: MYOCARDIAL INFARCTION
     Route: 060
     Dates: start: 20050901
  29. ATORVASTATIN CALCIUM [Concomitant]
     Indication: MYOCARDIAL INFARCTION
     Route: 048
     Dates: start: 20050901
  30. CLOPIDOGREL BISULFATE [Concomitant]
     Indication: MYOCARDIAL INFARCTION
     Route: 048
     Dates: start: 20050906
  31. GABAPENTIN [Concomitant]
     Indication: NEUROPATHY PERIPHERAL
     Route: 048
     Dates: start: 20050901
  32. BACTRIM [Concomitant]
     Indication: ANTIBIOTIC PROPHYLAXIS
     Route: 048
     Dates: start: 20050901
  33. CARVEDILOL [Concomitant]
     Indication: ISCHAEMIC HEART DISEASE PROPHYLAXIS
     Route: 048
     Dates: start: 20051012
  34. INSULIN GLARGINE [Concomitant]
     Indication: DIABETES MELLITUS
     Route: 058
     Dates: start: 20050831
  35. REGULAR INSULIN [Concomitant]
     Indication: DIABETES MELLITUS
     Route: 058
     Dates: start: 20050831
  36. INSULIN HUMAN [Concomitant]
     Indication: DRUG USE FOR UNKNOWN INDICATION
     Route: 058
  37. NOVOLOG [Concomitant]
     Indication: DRUG USE FOR UNKNOWN INDICATION
     Dosage: SLIDING SCALE COVERAGE
  38. ISOSORBIDE MONONITRATE [Concomitant]
     Indication: DRUG USE FOR UNKNOWN INDICATION
     Route: 048
  39. METOCLOPRAMIDE [Concomitant]
     Indication: DRUG USE FOR UNKNOWN INDICATION
     Route: 048
  40. ACETYLSALICYLIC ACID SRT [Concomitant]
     Indication: DRUG USE FOR UNKNOWN INDICATION
     Route: 048
  41. LANSOPRAZOLE [Concomitant]
     Indication: DRUG USE FOR UNKNOWN INDICATION
     Route: 048
  42. SIMVASTATIN [Concomitant]
     Indication: DRUG USE FOR UNKNOWN INDICATION
     Route: 048
  43. ZOLPIDEM TARTRATE [Concomitant]
     Indication: DRUG USE FOR UNKNOWN INDICATION
     Route: 048

REACTIONS (4)
  - CARDIAC FAILURE [None]
  - CHEST PAIN [None]
  - METABOLIC ACIDOSIS [None]
  - MYOCARDIAL INFARCTION [None]
